FAERS Safety Report 6666416-8 (Version None)
Quarter: 2010Q1

REPORT INFORMATION
  Report Type: 
  Country: None (occurrence: None)
  Receive Date: 20100331
  Receipt Date: 20100316
  Transmission Date: 20100710
  Serious: No
  Sender: FDA-Public Use
  Company Number: B0643297A

PATIENT
  Sex: 0

DRUGS (8)
  1. TACROLIMUS [Suspect]
     Indication: PROPHYLAXIS AGAINST TRANSPLANT REJECTION
  2. ETOPOSIDE [Suspect]
     Indication: STEM CELL TRANSPLANT
     Dosage: 60 MG/KG
  3. MELPHALAN (FORMULATION UNKNOWN) (MELPHALAN) (GENERIC) [Suspect]
     Indication: STEM CELL TRANSPLANT
     Dosage: 140 MG/M2/INTRAVENOUS
     Route: 042
  4. SIROLIMUS [Suspect]
     Indication: PROPHYLAXIS
     Dosage: ORAL
     Route: 048
  5. MYLERAN [Suspect]
     Indication: STEM CELL TRANSPLANT
     Dosage: .8 MG/KG/INTRAVENOUS
     Route: 042
  6. FLUDARABINE PHOSPHATE [Suspect]
     Indication: STEM CELL TRANSPLANT
     Dosage: 25 MG/M2/INTRAVENOUS
     Route: 042
  7. CYCLOPHOSPHAMIDE [Suspect]
     Indication: STEM CELL TRANSPLANT
     Dosage: 60 MG/KG/PER DAY
  8. RADIOTHERAPY (FORMULATION UNKNOWN) (RADIOTHERAPY) [Suspect]
     Indication: STEM CELL TRANSPLANT
     Dosage: 1320 CGY

REACTIONS (2)
  - ACUTE GRAFT VERSUS HOST DISEASE [None]
  - THROMBOTIC MICROANGIOPATHY [None]
